FAERS Safety Report 7908522-3 (Version None)
Quarter: 2011Q4

REPORT INFORMATION
  Report Type: 
  Country: None (occurrence: None)
  Receive Date: 20111110
  Receipt Date: 20111110
  Transmission Date: 20120403
  Serious: No
  Sender: FDA-Public Use
  Company Number: None

PATIENT

DRUGS (2)
  1. PRAZOSIN HCL [Suspect]
  2. PROZAC [Suspect]

REACTIONS (5)
  - MEDICATION ERROR [None]
  - ORTHOSTATIC HYPOTENSION [None]
  - DRUG NAME CONFUSION [None]
  - WRONG DRUG ADMINISTERED [None]
  - DRUG DISPENSING ERROR [None]
